FAERS Safety Report 22345795 (Version 2)
Quarter: 2023Q2

REPORT INFORMATION
  Report Type: Spontaneous
  Country: US (occurrence: US)
  Receive Date: 20230519
  Receipt Date: 20230616
  Transmission Date: 20230722
  Serious: No
  Sender: FDA-Public Use
  Company Number: US-GLAXOSMITHKLINE-US2023AMR067665

PATIENT
  Sex: Female

DRUGS (6)
  1. BENLYSTA [Suspect]
     Active Substance: BELIMUMAB
     Indication: Epilepsy
     Dosage: 200 MG/ML, WE, INJECT 200 MG (1 PEN)
     Route: 058
  2. BENLYSTA [Suspect]
     Active Substance: BELIMUMAB
     Indication: Polyarthritis
  3. BENLYSTA [Suspect]
     Active Substance: BELIMUMAB
     Indication: Polyarthritis
  4. BENLYSTA [Suspect]
     Active Substance: BELIMUMAB
     Indication: Systemic lupus erythematosus
  5. BENLYSTA [Suspect]
     Active Substance: BELIMUMAB
     Indication: Spinal osteoarthritis
  6. BENLYSTA [Suspect]
     Active Substance: BELIMUMAB
     Indication: Paraesthesia

REACTIONS (3)
  - Injection site swelling [Unknown]
  - Injection site bruising [Unknown]
  - Product use in unapproved indication [Unknown]
